FAERS Safety Report 6748733-6 (Version None)
Quarter: 2010Q2

REPORT INFORMATION
  Report Type: 
  Country: None (occurrence: None)
  Receive Date: 20100601
  Receipt Date: 20100518
  Transmission Date: 20101027
  Serious: Yes (Other)
  Sender: FDA-Public Use
  Company Number: PHHY2010US07185

PATIENT
  Sex: Female
  Weight: 76.7 kg

DRUGS (13)
  1. GLEEVEC [Suspect]
     Indication: GASTROINTESTINAL STROMAL TUMOUR
     Dosage: 200 MG, BID
     Route: 048
     Dates: start: 20090522
  2. GLEEVEC [Suspect]
     Dosage: 200 MG, BID
     Route: 048
     Dates: start: 20091117
  3. CARDIZEM [Concomitant]
     Indication: HYPERTENSION
     Dosage: 300 MG, DAILY
     Route: 048
  4. REMERON [Concomitant]
     Indication: DEPRESSION
     Dosage: 30 MG, HS
     Route: 048
  5. LISINOPRIL [Concomitant]
  6. GABAPENTIN [Concomitant]
  7. PRAVACHOL [Concomitant]
     Indication: HYPERLIPIDAEMIA
     Dosage: 40 MG, HS
     Route: 048
  8. ASPIRIN [Concomitant]
     Indication: PROPHYLAXIS
     Dosage: 81 MG, UNK
     Route: 048
  9. XANAX [Concomitant]
     Indication: ANXIETY
     Dosage: 0.25 MG, BID
     Route: 048
  10. NEURONTIN [Concomitant]
     Indication: HYPERTENSION
     Dosage: 300 MG, HS
     Route: 048
  11. ZESTRIL [Concomitant]
     Indication: HYPERTENSION
     Dosage: 20 MG, DAILY
     Route: 048
  12. ANTIVERT [Concomitant]
     Indication: DIZZINESS
     Dosage: 25 MG, TID
     Route: 048
  13. COMPAZINE [Concomitant]
     Indication: NAUSEA
     Dosage: 10 MG, PRN, 4 - 6 HOURS
     Route: 048

REACTIONS (2)
  - BACK PAIN [None]
  - MACROCYTOSIS [None]
